FAERS Safety Report 8473831-9 (Version None)
Quarter: 2012Q2

REPORT INFORMATION
  Report Type: 
  Country: None (occurrence: None)
  Receive Date: 20120628
  Receipt Date: 20120615
  Transmission Date: 20120825
  Serious: Yes (Other)
  Sender: FDA-Public Use
  Company Number: US-MYLANLABS-2011S1025556

PATIENT
  Age: 41 Year
  Sex: Male

DRUGS (12)
  1. VITAMIN D [Concomitant]
     Dosage: 1000 (UNITS NOT PROVIDED)
  2. INH [Concomitant]
  3. CLOZAPINE [Suspect]
     Route: 048
     Dates: start: 20120501
  4. WELLBUTRIN XL [Concomitant]
  5. CALCIUM CARBONATE [Concomitant]
     Dosage: 2 DOSAGE FORMS, DOSE UNKNOWN
  6. LORAZEPAM [Concomitant]
  7. CLOZAPINE [Suspect]
     Route: 048
     Dates: end: 20120518
  8. GLYBURIDE [Concomitant]
     Indication: DIABETES MELLITUS
     Route: 048
  9. CYMBALTA [Concomitant]
     Route: 048
  10. MERCAPTOPURINE [Concomitant]
  11. DEXILANT [Concomitant]
     Indication: ABDOMINAL OPERATION
  12. VITAMIN B6 [Concomitant]

REACTIONS (2)
  - LEUKOPENIA [None]
  - GRANULOCYTOPENIA [None]
